FAERS Safety Report 6040323-6 (Version None)
Quarter: 2009Q1

REPORT INFORMATION
  Report Type: 
  Country: None (occurrence: None)
  Receive Date: 20090116
  Receipt Date: 20080214
  Transmission Date: 20090719
  Serious: No
  Sender: FDA-Public Use
  Company Number: US-BRISTOL-MYERS SQUIBB COMPANY-14076210

PATIENT
  Age: 6 Decade
  Sex: Female

DRUGS (5)
  1. ABILIFY [Suspect]
     Indication: DEPRESSION
     Dosage: EITHER 5 MG OR 10 MG DAILY.
  2. EFFEXOR [Concomitant]
  3. PROZAC [Concomitant]
  4. TOPAMAX [Concomitant]
  5. TRYPTAN [Concomitant]

REACTIONS (1)
  - MOVEMENT DISORDER [None]
